FAERS Safety Report 20966524 (Version 1)
Quarter: 2022Q2

REPORT INFORMATION
  Report Type: Spontaneous
  Country: US (occurrence: US)
  Receive Date: 20220616
  Receipt Date: 20220616
  Transmission Date: 20220721
  Serious: No
  Sender: FDA-Public Use
  Company Number: US-GILEAD-2022-0584929

PATIENT
  Sex: Male

DRUGS (8)
  1. HARVONI [Suspect]
     Active Substance: LEDIPASVIR\SOFOSBUVIR
     Indication: Chronic hepatitis C
     Dosage: 1 DOSAGE FORM, QD
     Route: 048
  2. CETIRIZINE HYDROCHLORIDE [Concomitant]
     Active Substance: CETIRIZINE HYDROCHLORIDE
  3. MELOXICAM [Concomitant]
     Active Substance: MELOXICAM
  4. OMEPRAZOLE [Concomitant]
     Active Substance: OMEPRAZOLE
  5. SILDENAFIL CITRATE [Concomitant]
     Active Substance: SILDENAFIL CITRATE
  6. VISTARIL [Concomitant]
     Active Substance: HYDROXYZINE PAMOATE
  7. SYMBICORT [Concomitant]
     Active Substance: BUDESONIDE\FORMOTEROL FUMARATE DIHYDRATE
  8. LEVALBUTEROL [Concomitant]
     Active Substance: LEVALBUTEROL

REACTIONS (5)
  - Eye disorder [Unknown]
  - Dyspepsia [Unknown]
  - Myalgia [Unknown]
  - Arthralgia [Unknown]
  - Acne [Unknown]
